FAERS Safety Report 9827185 (Version 2)
Quarter: 2014Q1

REPORT INFORMATION
  Report Type: Spontaneous
  Country: US (occurrence: US)
  Receive Date: 20140117
  Receipt Date: 20140117
  Transmission Date: 20141002
  Serious: Yes (Other)
  Sender: FDA-Public Use
  Company Number: US-BEH-200813548

PATIENT
  Age: 52 Year
  Sex: Female
  Weight: 62 kg

DRUGS (4)
  1. ZEMAIRA [Suspect]
     Indication: ALPHA-1 ANTI-TRYPSIN DEFICIENCY
     Route: 042
     Dates: start: 20080501
  2. MAXAIR AUTOINHALER [Concomitant]
     Indication: ASTHMA
     Dosage: DAILY DOSE QUANTITY: .2, DAILY DOSE UNIT: MG
     Route: 055
     Dates: start: 20080328
  3. SYMBICORT INHALER [Concomitant]
     Indication: ASTHMA
     Route: 055
     Dates: start: 20080328
  4. CLONAZEPAM [Concomitant]
     Dosage: DAILY DOSE QUANTITY: .25, DAILY DOSE UNIT: MG
     Route: 048
     Dates: start: 20080328

REACTIONS (4)
  - Respiratory tract infection [Unknown]
  - Headache [Recovered/Resolved]
  - Pruritus [Recovered/Resolved]
  - Somnolence [Recovered/Resolved]
